FAERS Safety Report 10210780 (Version 1)
Quarter: 2014Q2

REPORT INFORMATION
  Report Type: Report from Study
  Country: CZ (occurrence: CZ)
  Receive Date: 20140602
  Receipt Date: 20140602
  Transmission Date: 20141212
  Serious: Yes (Hospitalization)
  Sender: FDA-Public Use
  Company Number: CZ-TEVA-484921ISR

PATIENT
  Age: 68 Year
  Sex: 0
  Weight: 83 kg

DRUGS (13)
  1. OXALIPLATIN [Suspect]
     Indication: ADENOCARCINOMA OF COLON
     Route: 042
     Dates: start: 20130311, end: 20130618
  2. FLUOROURACIL [Suspect]
     Indication: ADENOCARCINOMA OF COLON
     Route: 042
     Dates: start: 20140311
  3. FLUOROURACIL [Suspect]
     Route: 041
     Dates: start: 20130311
  4. TIVOZANIB [Suspect]
     Indication: ADENOCARCINOMA OF COLON
     Dosage: 1 MILLIGRAM DAILY;
     Route: 048
     Dates: start: 20140412
  5. TIVOZANIB [Suspect]
     Dosage: 1 MILLIGRAM DAILY;
     Route: 048
     Dates: start: 20130311, end: 20140416
  6. LEUCOVORIN CALCIUM [Suspect]
     Indication: ADENOCARCINOMA OF COLON
     Route: 042
     Dates: start: 20130311
  7. ISOPTIN [Concomitant]
  8. PRENESSA [Concomitant]
  9. EBRANTIL [Concomitant]
     Dosage: MODIFIED-RELEASE TABLET
  10. SYMBICORT [Concomitant]
  11. HYDROCHLOROTHIAZIDE [Concomitant]
  12. BORAX [Concomitant]
  13. ARNICA MONTANA [Concomitant]

REACTIONS (1)
  - Pulmonary embolism [Recovered/Resolved]
